FAERS Safety Report 5726699-5 (Version None)
Quarter: 2008Q2

REPORT INFORMATION
  Report Type: 
  Country: None (occurrence: None)
  Receive Date: 20080502
  Receipt Date: 20080428
  Transmission Date: 20081010
  Serious: Yes (Death, Hospitalization, Other)
  Sender: FDA-Public Use
  Company Number: US-SANOFI-SYNTHELABO-F01200800699

PATIENT
  Sex: Female

DRUGS (4)
  1. BEVACIZUMAB [Suspect]
     Route: 042
  2. LEUCOVORIN CALCIUM [Suspect]
     Route: 042
  3. FLUOROURACIL [Suspect]
     Dosage: 400 MG/M2 IV BOLUS AND 2400 MG/M2 IV CONTINUOUS INFUSION FOR 46 HOURS, Q2W
     Route: 042
  4. OXALIPLATIN [Suspect]
     Indication: COLON CANCER STAGE III
     Route: 042

REACTIONS (8)
  - ABDOMINAL PAIN [None]
  - BLOOD PHOSPHORUS DECREASED [None]
  - BLOOD POTASSIUM INCREASED [None]
  - DEATH [None]
  - DISEASE PROGRESSION [None]
  - FISTULA [None]
  - GASTRIC PERFORATION [None]
  - SMALL INTESTINAL OBSTRUCTION [None]
